FAERS Safety Report 16057338 (Version 2)
Quarter: 2019Q2

REPORT INFORMATION
  Report Type: Spontaneous
  Country: US (occurrence: US)
  Receive Date: 20190311
  Receipt Date: 20190409
  Transmission Date: 20190711
  Serious: No
  Sender: FDA-Public Use
  Company Number: US-PFIZER INC-2019059599

PATIENT
  Age: 64 Year
  Sex: Female
  Weight: 102 kg

DRUGS (6)
  1. ZYVOX [Suspect]
     Active Substance: LINEZOLID
     Indication: CARDIAC INFECTION
     Dosage: 600 MG, UNK
  2. ZYVOX [Suspect]
     Active Substance: LINEZOLID
     Indication: LUNG INFECTION
  3. DOXYCYCLINE HYCLATE. [Suspect]
     Active Substance: DOXYCYCLINE HYCLATE
     Indication: LUNG INFECTION
  4. ZYVOX [Suspect]
     Active Substance: LINEZOLID
     Indication: MYCOBACTERIUM FORTUITUM INFECTION
     Dosage: 600 MG, 2X/DAY
     Route: 048
     Dates: start: 201901, end: 201903
  5. DOXYCYCLINE HYCLATE. [Suspect]
     Active Substance: DOXYCYCLINE HYCLATE
     Indication: CARDIAC INFECTION
     Dosage: 100 MG, 2X/DAY
     Route: 048
     Dates: start: 201901, end: 201903
  6. SOTALOL. [Concomitant]
     Active Substance: SOTALOL
     Indication: CARDIAC DISORDER
     Dosage: UNK

REACTIONS (8)
  - Dehydration [Unknown]
  - Malaise [Recovered/Resolved]
  - Nausea [Not Recovered/Not Resolved]
  - Product use in unapproved indication [Unknown]
  - Diarrhoea [Unknown]
  - Decreased appetite [Unknown]
  - Intentional product use issue [Unknown]
  - Asthenia [Unknown]

NARRATIVE: CASE EVENT DATE: 201901
